FAERS Safety Report 9000936 (Version 1)
Quarter: 2012Q4

REPORT INFORMATION
  Report Type: Spontaneous
  Country: US (occurrence: None)
  Receive Date: 20121226
  Receipt Date: 20121226
  Transmission Date: 20130627
  Serious: Yes (Death, Life-Threatening, Other)
  Sender: FDA-Public Use
  Company Number: 2012AP004291

PATIENT
  Sex: Male

DRUGS (3)
  1. CLOPIDOGREL TABLETS USP [Suspect]
     Indication: STENT PLACEMENT
     Dates: end: 20120910
  2. CLOPIDOGREL [Suspect]
     Indication: STENT PLACEMENT
     Dates: start: 201011
  3. ASPIRIN [Concomitant]

REACTIONS (2)
  - Myocardial infarction [None]
  - Prostatic specific antigen increased [None]
